FAERS Safety Report 8932131 (Version 1)
Quarter: 2012Q4

REPORT INFORMATION
  Report Type: 
  Country: FR (occurrence: FR)
  Receive Date: 20121128
  Receipt Date: 20121128
  Transmission Date: 20130627
  Serious: Yes (Life-Threatening, Hospitalization, Other)
  Sender: FDA-Public Use
  Company Number: FR-PFIZER INC-2012294380

PATIENT
  Age: 54 Year
  Sex: Male

DRUGS (2)
  1. SUTENT [Suspect]
     Indication: RENAL CANCER METASTATIC
     Dosage: 50 mg, 1x/day
     Route: 048
     Dates: start: 20121001, end: 20121025
  2. CO-RENITEC [Suspect]
     Indication: HYPERTENSION ARTERIAL
     Dosage: UNK
     Route: 048
     Dates: start: 2010, end: 20121025

REACTIONS (1)
  - Thrombotic microangiopathy [Recovered/Resolved]
